FAERS Safety Report 5181135-5 (Version None)
Quarter: 2006Q4

REPORT INFORMATION
  Report Type: 
  Country: None (occurrence: None)
  Receive Date: 20061215
  Receipt Date: 20061215
  Transmission Date: 20070319
  Serious: Yes (Life-Threatening, Hospitalization)
  Sender: FDA-Public Use
  Company Number: None

PATIENT
  Sex: Male
  Weight: 102.0593 kg

DRUGS (2)
  1. KETEK [Suspect]
     Indication: BRONCHITIS
     Dosage: 1 1X DAY
     Dates: start: 20050406, end: 20050410
  2. . [Concomitant]

REACTIONS (2)
  - BLOOD POTASSIUM DECREASED [None]
  - TORSADE DE POINTES [None]
